FAERS Safety Report 15832434 (Version 1)
Quarter: 2019Q1

REPORT INFORMATION
  Report Type: Spontaneous
  Country: DE (occurrence: DE)
  Receive Date: 20190116
  Receipt Date: 20190116
  Transmission Date: 20190417
  Serious: Yes (Other)
  Sender: FDA-Public Use
  Company Number: DE-MYLANLABS-2019M1001296

PATIENT
  Age: 11 Year
  Sex: Male

DRUGS (1)
  1. LAMOTRIGINE. [Suspect]
     Active Substance: LAMOTRIGINE
     Indication: GENERALISED TONIC-CLONIC SEIZURE
     Route: 065

REACTIONS (1)
  - Drug ineffective [Recovered/Resolved]
